FAERS Safety Report 25908609 (Version 1)
Quarter: 2025Q4

REPORT INFORMATION
  Report Type: Spontaneous
  Country: US (occurrence: US)
  Receive Date: 20251010
  Receipt Date: 20251010
  Transmission Date: 20260117
  Serious: Yes (Hospitalization)
  Sender: MERCK SHARP & DOHME LLC
  Company Number: US-009507513-2337777

PATIENT
  Age: 76 Year
  Sex: Female

DRUGS (12)
  1. KEYTRUDA [Suspect]
     Active Substance: PEMBROLIZUMAB
     Indication: Renal cancer
  2. CABOMETYX [Suspect]
     Active Substance: CABOZANTINIB S-MALATE
     Indication: Renal cancer
     Route: 048
     Dates: end: 20250906
  3. CABOMETYX [Suspect]
     Active Substance: CABOZANTINIB S-MALATE
     Indication: Renal cancer
     Route: 048
     Dates: start: 20250909
  4. LENVIMA [Suspect]
     Active Substance: LENVATINIB
     Indication: Renal cancer
     Route: 048
  5. ELIQUIS [Concomitant]
     Active Substance: APIXABAN
  6. METOPROLOL [Concomitant]
     Active Substance: METOPROLOL
  7. PREDNISONE [Concomitant]
     Active Substance: PREDNISONE
  8. Mom (Magnesium hydroxide) [Concomitant]
  9. BENADRYL [Concomitant]
     Active Substance: DIPHENHYDRAMINE HYDROCHLORIDE
  10. PANTOPRAZOLE [Concomitant]
     Active Substance: PANTOPRAZOLE
  11. TYLENOL [Concomitant]
     Active Substance: ACETAMINOPHEN
  12. LOSARTAN [Concomitant]
     Active Substance: LOSARTAN

REACTIONS (14)
  - Thrombosis [Recovered/Resolved]
  - Blood pressure increased [Recovering/Resolving]
  - Pneumonia [Recovered/Resolved]
  - Rash [Unknown]
  - Pulmonary embolism [Recovered/Resolved]
  - Dyspnoea exertional [Recovered/Resolved]
  - Fatigue [Recovering/Resolving]
  - Psoriasis [Unknown]
  - Tongue coated [Unknown]
  - COVID-19 [Recovered/Resolved]
  - Skin lesion [Unknown]
  - Hypotension [Unknown]
  - Arthralgia [Unknown]
  - Rash pruritic [Recovered/Resolved]

NARRATIVE: CASE EVENT DATE: 20250101
